FAERS Safety Report 7243958-8 (Version None)
Quarter: 2011Q1

REPORT INFORMATION
  Report Type: 
  Country: None (occurrence: None)
  Receive Date: 20110125
  Receipt Date: 20110113
  Transmission Date: 20110831
  Serious: Yes (Other)
  Sender: FDA-Public Use
  Company Number: PHHY2010US66046

PATIENT
  Sex: Female

DRUGS (3)
  1. RECLAST [Suspect]
     Dosage: UNK
     Dates: start: 20101102
  2. LANTUS [Concomitant]
  3. NOVOLOG [Concomitant]

REACTIONS (15)
  - RENAL DISORDER [None]
  - FLUID INTAKE REDUCED [None]
  - BLOOD URINE PRESENT [None]
  - APHAGIA [None]
  - URINARY TRACT INFECTION [None]
  - PALLOR [None]
  - ARTHRALGIA [None]
  - PAIN IN EXTREMITY [None]
  - PAIN [None]
  - MUSCULAR WEAKNESS [None]
  - PAIN IN JAW [None]
  - DIARRHOEA [None]
  - BONE PAIN [None]
  - HEADACHE [None]
  - NAUSEA [None]
